FAERS Safety Report 8027712-5 (Version None)
Quarter: 2012Q1

REPORT INFORMATION
  Report Type: 
  Country: None (occurrence: None)
  Receive Date: 20120106
  Receipt Date: 20120104
  Transmission Date: 20120608
  Serious: Yes (Other)
  Sender: FDA-Public Use
  Company Number: US-BAYER-2012-000834

PATIENT
  Sex: Female

DRUGS (1)
  1. MIRENA [Suspect]

REACTIONS (7)
  - OVARIAN CYST RUPTURED [None]
  - UTERINE PAIN [None]
  - ADNEXA UTERI PAIN [None]
  - ABDOMINAL PAIN [None]
  - BREAST PAIN [None]
  - MENSTRUATION DELAYED [None]
  - BREAST MASS [None]
